FAERS Safety Report 4352649-2 (Version None)
Quarter: 2004Q2

REPORT INFORMATION
  Report Type: 
  Country: None (occurrence: None)
  Receive Date: 20040504
  Receipt Date: 20040421
  Transmission Date: 20050107
  Serious: Yes (Disabling)
  Sender: FDA-Public Use
  Company Number: US-MERCK-0404USA01964

PATIENT
  Age: 62 Year
  Sex: Male

DRUGS (6)
  1. PERCOCET [Concomitant]
     Route: 065
  2. TORADOL [Concomitant]
     Route: 042
     Dates: start: 20030801, end: 20030801
  3. ZOFRAN [Concomitant]
     Route: 065
  4. VIOXX [Suspect]
     Indication: PAIN
     Route: 048
     Dates: start: 20030801, end: 20030801
  5. VIOXX [Suspect]
     Route: 048
     Dates: start: 20030801, end: 20030801
  6. SENNA [Concomitant]
     Route: 065

REACTIONS (2)
  - GLOMERULONEPHRITIS MEMBRANOUS [None]
  - PRESCRIBED OVERDOSE [None]
